FAERS Safety Report 16799758 (Version 2)
Quarter: 2019Q3

REPORT INFORMATION
  Report Type: Spontaneous
  Country: IL (occurrence: IL)
  Receive Date: 20190912
  Receipt Date: 20190923
  Transmission Date: 20191005
  Serious: Yes (Other)
  Sender: FDA-Public Use
  Company Number: IL-PFIZER INC-2019389713

PATIENT
  Age: 61 Year
  Sex: Female

DRUGS (5)
  1. CRIZOTINIB [Suspect]
     Active Substance: CRIZOTINIB
     Dosage: UNK
  2. CLEXANE [Concomitant]
     Active Substance: ENOXAPARIN SODIUM
     Dosage: HALF DOSE
  3. BRIGATINIB [Suspect]
     Active Substance: BRIGATINIB
     Dosage: 90 MG, DAILY, FIRST WEEK
  4. SALAZOPYRIN [Concomitant]
     Active Substance: SULFASALAZINE
     Indication: COLITIS ULCERATIVE
  5. BRIGATINIB [Suspect]
     Active Substance: BRIGATINIB
     Dosage: 180 MG, DAILY

REACTIONS (11)
  - Hepatotoxicity [Recovered/Resolved]
  - Visual impairment [Unknown]
  - Haemoptysis [Unknown]
  - Dyspnoea [Unknown]
  - Vomiting [Unknown]
  - Eastern Cooperative Oncology Group performance status worsened [Unknown]
  - Embolism venous [Unknown]
  - Pulmonary embolism [Unknown]
  - Headache [Unknown]
  - Haemorrhage [Unknown]
  - Rash [Unknown]

NARRATIVE: CASE EVENT DATE: 201901
